FAERS Safety Report 6025209-5 (Version None)
Quarter: 2008Q4

REPORT INFORMATION
  Report Type: 
  Country: None (occurrence: None)
  Receive Date: 20081229
  Receipt Date: 20081229
  Transmission Date: 20090506
  Serious: No
  Sender: FDA-Public Use
  Company Number: None

PATIENT
  Age: 59 Year
  Sex: Male
  Weight: 108.8633 kg

DRUGS (1)
  1. CASODEX [Suspect]
     Indication: PROSTATE CANCER METASTATIC
     Dosage: ONE PILL DAILY IN EVENING
     Dates: start: 20070817, end: 20081231

REACTIONS (9)
  - ECONOMIC PROBLEM [None]
  - FATIGUE [None]
  - GYNAECOMASTIA [None]
  - HOT FLUSH [None]
  - OEDEMA PERIPHERAL [None]
  - PAIN [None]
  - RASH PRURITIC [None]
  - UNEVALUABLE EVENT [None]
  - WEIGHT INCREASED [None]
